FAERS Safety Report 23735301 (Version 1)
Quarter: 2024Q2

REPORT INFORMATION
  Report Type: Spontaneous
  Country: US (occurrence: US)
  Receive Date: 20240412
  Receipt Date: 20240412
  Transmission Date: 20240716
  Serious: Yes (Life-Threatening, Hospitalization)
  Sender: FDA-Public Use
  Company Number: US-MYLANLABS-2024M1030767

PATIENT
  Age: 82 Year
  Sex: Female

DRUGS (1)
  1. AMIODARONE [Suspect]
     Active Substance: AMIODARONE
     Indication: Atrial fibrillation
     Dosage: UNK
     Route: 065

REACTIONS (7)
  - Decompensated hypothyroidism [Recovering/Resolving]
  - Cardiogenic shock [Recovering/Resolving]
  - Depressed level of consciousness [Recovering/Resolving]
  - Acute respiratory failure [Recovering/Resolving]
  - Nodal rhythm [Recovering/Resolving]
  - Atrioventricular block first degree [Recovering/Resolving]
  - Pulmonary oedema [Recovering/Resolving]
